FAERS Safety Report 6679575-8 (Version None)
Quarter: 2010Q2

REPORT INFORMATION
  Report Type: 
  Country: None (occurrence: None)
  Receive Date: 20100413
  Receipt Date: 20100406
  Transmission Date: 20101027
  Serious: Yes (Hospitalization)
  Sender: FDA-Public Use
  Company Number: FR-PURDUE-GBR-2010-0006386

PATIENT
  Sex: Female

DRUGS (3)
  1. OXYCONTIN [Suspect]
     Indication: CANCER PAIN
     Dosage: UNK
     Route: 048
     Dates: end: 20100313
  2. DURAGESIC-100 [Suspect]
     Indication: CANCER PAIN
     Dosage: UNK
     Route: 062
     Dates: end: 20100313
  3. FENTANYL-100 [Suspect]
     Indication: CANCER PAIN
     Dosage: UNK
     Route: 048
     Dates: end: 20100313

REACTIONS (5)
  - ACCIDENTAL OVERDOSE [None]
  - BRADYPNOEA [None]
  - MALAISE [None]
  - OXYGEN SATURATION DECREASED [None]
  - SOMNOLENCE [None]
